FAERS Safety Report 8499472-5 (Version None)
Quarter: 2012Q3

REPORT INFORMATION
  Report Type: 
  Country: None (occurrence: None)
  Receive Date: 20120710
  Receipt Date: 20120628
  Transmission Date: 20120928
  Serious: Yes (Hospitalization)
  Sender: FDA-Public Use
  Company Number: JP-VERTEX PHARMACEUTICALS INC.-AE-2012-009785

PATIENT
  Age: 56 Year
  Sex: Male

DRUGS (19)
  1. PREDNISOLONE [Concomitant]
     Indication: ADVERSE EVENT
     Route: 048
     Dates: start: 20120428, end: 20120504
  2. TELAVIC (TELAPREVIR) [Suspect]
     Indication: HEPATITIS C
     Route: 048
     Dates: start: 20120314, end: 20120427
  3. RIBAVIRIN [Concomitant]
     Route: 048
     Dates: start: 20120510, end: 20120515
  4. PREDNISOLONE [Concomitant]
     Route: 048
     Dates: start: 20120523, end: 20120529
  5. RIBAVIRIN [Concomitant]
     Indication: HEPATITIS C
     Route: 048
     Dates: start: 20120314, end: 20120327
  6. RIBAVIRIN [Concomitant]
     Route: 048
     Dates: start: 20120516
  7. LOXONIN [Concomitant]
     Route: 048
     Dates: start: 20120314, end: 20120330
  8. MAGMITT [Concomitant]
     Route: 048
  9. SITAGLIPTIN PHOSPHATE [Concomitant]
     Route: 048
     Dates: start: 20120502
  10. ASPIRIN [Concomitant]
     Route: 048
  11. CANDESARTAN CILEXETIL [Concomitant]
     Route: 048
  12. TALION [Concomitant]
     Route: 048
  13. ACETAMINOPHEN [Concomitant]
     Route: 048
     Dates: start: 20120404
  14. PREDNISOLONE [Concomitant]
     Route: 048
     Dates: start: 20120505, end: 20120509
  15. RIBAVIRIN [Concomitant]
     Route: 048
     Dates: start: 20120328, end: 20120509
  16. PEG-INTRON [Concomitant]
     Indication: HEPATITIS C
     Route: 058
     Dates: start: 20120314
  17. CELEBREX [Concomitant]
     Route: 048
     Dates: start: 20120425, end: 20120427
  18. PREDNISOLONE [Concomitant]
     Route: 048
     Dates: start: 20120510, end: 20120515
  19. PREDNISOLONE [Concomitant]
     Route: 048
     Dates: start: 20120516, end: 20120522

REACTIONS (1)
  - ERYTHEMA [None]
